FAERS Safety Report 4771152-9 (Version None)
Quarter: 2005Q3

REPORT INFORMATION
  Report Type: 
  Country: None (occurrence: None)
  Receive Date: 20050912
  Receipt Date: 20050517
  Transmission Date: 20060218
  Serious: No
  Sender: FDA-Public Use
  Company Number: 2005-01098

PATIENT
  Sex: Male

DRUGS (2)
  1. VELCADE [Suspect]
  2. WARFARIN [Concomitant]

REACTIONS (1)
  - DRUG INTERACTION [None]
